FAERS Safety Report 25707685 (Version 3)
Quarter: 2025Q3

REPORT INFORMATION
  Report Type: Report from Study
  Country: US (occurrence: US)
  Receive Date: 20250820
  Receipt Date: 20250924
  Transmission Date: 20251020
  Serious: Yes (Other)
  Sender: MYLAN
  Company Number: US-MYLANLABS-2025M1069961

PATIENT
  Age: 50 Year
  Sex: Male

DRUGS (2)
  1. MELPHALAN HYDROCHLORIDE [Suspect]
     Active Substance: MELPHALAN HYDROCHLORIDE
     Indication: Metastases to liver
  2. KIMMTRAK [Suspect]
     Active Substance: TEBENTAFUSP-TEBN
     Indication: Metastases to liver

REACTIONS (7)
  - Exertional rhabdomyolysis [Unknown]
  - Malaise [Unknown]
  - Hepatic lesion [Unknown]
  - Hepatic enzyme increased [Unknown]
  - Full blood count abnormal [Unknown]
  - Platelet count abnormal [Unknown]
  - Off label use [Unknown]

NARRATIVE: CASE EVENT DATE: 20250101
